FAERS Safety Report 14788218 (Version 2)
Quarter: 2018Q2

REPORT INFORMATION
  Report Type: Report from Study
  Country: JP (occurrence: JP)
  Receive Date: 20180423
  Receipt Date: 20180427
  Transmission Date: 20180711
  Serious: Yes (Other)
  Sender: FDA-Public Use
  Company Number: JP-ROCHE-2110274

PATIENT
  Age: 21 Year
  Sex: Male
  Weight: 52 kg

DRUGS (29)
  1. MYCOPHENOLATE MOFETIL. [Suspect]
     Active Substance: MYCOPHENOLATE MOFETIL
     Indication: PROPHYLAXIS AGAINST TRANSPLANT REJECTION
     Dosage: DOSE INTERVAL UNCERTAINTY
     Route: 048
  2. MEDROL [Suspect]
     Active Substance: METHYLPREDNISOLONE
     Dosage: DOSE INTERVAL UNCERTAINTY
     Route: 048
  3. MYCOPHENOLATE MOFETIL. [Suspect]
     Active Substance: MYCOPHENOLATE MOFETIL
     Dosage: DOSE INTERVAL UNCERTAINTY
     Route: 048
  4. MEDROL [Suspect]
     Active Substance: METHYLPREDNISOLONE
     Indication: PRODUCT USED FOR UNKNOWN INDICATION
     Route: 048
     Dates: start: 20170817
  5. TELMISARTAN. [Concomitant]
     Active Substance: TELMISARTAN
     Dosage: DOSE INTERVAL UNCERTAINTY
     Route: 048
  6. MEDROL [Suspect]
     Active Substance: METHYLPREDNISOLONE
     Dosage: DOSE INTERVAL UNCERTAINTY
     Route: 048
  7. METHYLPREDNISOLONE SODIUM SUCCINATE. [Concomitant]
     Active Substance: METHYLPREDNISOLONE SODIUM SUCCINATE
     Dosage: DOSE INTERVAL UNCERTAINTY?LAST RECEIVED: 23/AUG/2017
     Route: 042
     Dates: start: 20170823
  8. METHYLPREDNISOLONE SODIUM SUCCINATE. [Concomitant]
     Active Substance: METHYLPREDNISOLONE SODIUM SUCCINATE
     Dosage: DOSE INTERVAL UNCERTAINTY?LAST RECEIVED: 24/AUG/2017
     Route: 042
     Dates: start: 20170824
  9. MYCOPHENOLATE MOFETIL. [Suspect]
     Active Substance: MYCOPHENOLATE MOFETIL
     Dosage: DOSE INTERVAL UNCERTAINTY
     Route: 048
  10. MYCOPHENOLATE MOFETIL. [Suspect]
     Active Substance: MYCOPHENOLATE MOFETIL
     Dosage: DOSE INTERVAL UNCERTAINTY
     Route: 048
  11. POLARAMINE [Concomitant]
     Active Substance: DEXCHLORPHENIRAMINE MALEATE
     Dosage: LAST RECEIVED: 22/AUG/2017
     Route: 042
     Dates: start: 20170822
  12. METHYLPREDNISOLONE SODIUM SUCCINATE. [Concomitant]
     Active Substance: METHYLPREDNISOLONE SODIUM SUCCINATE
     Dosage: DOSE INTERVAL UNCERTAINTY?LAST RECEIVED: 26/AUG/2017
     Route: 042
     Dates: start: 20170826
  13. BASILIXIMAB [Concomitant]
     Active Substance: BASILIXIMAB
     Dosage: LAST RECEIVED: 23/AUG/2017
     Route: 042
     Dates: start: 20170823
  14. MEDROL [Suspect]
     Active Substance: METHYLPREDNISOLONE
     Dosage: DOSE INTERVAL UNCERTAINTY
     Route: 048
  15. METHYLPREDNISOLONE SODIUM SUCCINATE. [Concomitant]
     Active Substance: METHYLPREDNISOLONE SODIUM SUCCINATE
     Dosage: DOSE INTERVAL UNCERTAINTY?LAST RECEIVED: 27/AUG/2017
     Route: 042
     Dates: start: 20170827
  16. DAIPHEN [Concomitant]
     Active Substance: SULFAMETHOXAZOLE\TRIMETHOPRIM
     Indication: INFECTION PROPHYLAXIS
     Dosage: LAST RECEIVED: 23/FEB/2018
     Route: 048
     Dates: start: 20170904
  17. MYCOPHENOLATE MOFETIL. [Suspect]
     Active Substance: MYCOPHENOLATE MOFETIL
     Dosage: DOSE INTERVAL UNCERTAINTY
     Route: 048
  18. RITUXIMAB. [Suspect]
     Active Substance: RITUXIMAB
     Indication: PROPHYLAXIS AGAINST TRANSPLANT REJECTION
     Dosage: LAST RECEIVED: 08/AUG/2017
     Route: 041
     Dates: start: 20170808
  19. MEDROL [Suspect]
     Active Substance: METHYLPREDNISOLONE
     Dosage: DOSE INTERVAL UNCERTAINTY
     Route: 048
  20. CALONAL [Concomitant]
     Active Substance: ACETAMINOPHEN
     Dosage: LAST RECEIVED: 08/AUG/2017
     Route: 048
     Dates: start: 20170808
  21. POLARAMINE [Concomitant]
     Active Substance: DEXCHLORPHENIRAMINE MALEATE
     Dosage: LAST RECEIVED: 08/AUG/2017
     Route: 042
     Dates: start: 20170808
  22. METHYLPREDNISOLONE SODIUM SUCCINATE. [Concomitant]
     Active Substance: METHYLPREDNISOLONE SODIUM SUCCINATE
     Dosage: DOSE INTERVAL UNCERTAINTY?LAST RECEIVED: 25/AUG/2017
     Route: 042
     Dates: start: 20170825
  23. PARIET [Concomitant]
     Active Substance: RABEPRAZOLE SODIUM
     Dosage: DOSE INTERVAL UNCERTAINTY
     Route: 048
  24. MEDROL [Suspect]
     Active Substance: METHYLPREDNISOLONE
     Route: 048
     Dates: start: 20170829
  25. CALONAL [Concomitant]
     Active Substance: ACETAMINOPHEN
     Dosage: LAST RECEIVED: 22/AUG/2017
     Route: 048
     Dates: start: 20170822
  26. METHYLPREDNISOLONE SODIUM SUCCINATE. [Concomitant]
     Active Substance: METHYLPREDNISOLONE SODIUM SUCCINATE
     Dosage: DOSE INTERVAL UNCERTAINTY
     Route: 042
  27. RITUXIMAB. [Suspect]
     Active Substance: RITUXIMAB
     Indication: RENAL TRANSPLANT
     Dosage: LAST RECEIVED: 22/AUG/2017
     Route: 041
     Dates: start: 20170822
  28. GRACEPTOR [Suspect]
     Active Substance: TACROLIMUS
     Indication: PRODUCT USED FOR UNKNOWN INDICATION
     Dosage: DOSAGE WAS UNCERTAIN.?LAST RECEIVED: 27/AUG/2017
     Route: 048
     Dates: start: 20170817
  29. BASILIXIMAB [Concomitant]
     Active Substance: BASILIXIMAB
     Dosage: LAST RECEIVED: 27/AUG/2017
     Route: 042
     Dates: start: 20170827

REACTIONS (2)
  - Neutropenia [Recovered/Resolved]
  - Cytomegalovirus test positive [Recovered/Resolved]

NARRATIVE: CASE EVENT DATE: 20171218
